FAERS Safety Report 8799207 (Version 1)
Quarter: 2012Q4

REPORT INFORMATION
  Report Type: 
  Country: US (occurrence: US)
  Receive Date: 20120920
  Receipt Date: 20120920
  Transmission Date: 20130627
  Serious: Yes (Hospitalization)
  Sender: FDA-Public Use
  Company Number: US-MERCK-1201USA01276

PATIENT
  Age: 52 Year
  Sex: Female
  Weight: 91.6 kg

DRUGS (7)
  1. DECADRON [Suspect]
     Indication: MULTIPLE MYELOMA
     Dosage: 20 mg, QW
     Route: 042
     Dates: start: 20110614, end: 20111101
  2. VELCADE [Suspect]
     Indication: MULTIPLE MYELOMA
     Dosage: 2.7 mg, QW
     Route: 042
     Dates: start: 20110614, end: 20111101
  3. ZOMETA [Concomitant]
     Dosage: 4 mg, UNK
     Route: 042
     Dates: start: 20110823, end: 20111101
  4. VALTREX [Concomitant]
     Dosage: 500 mg, qd
  5. LEVAQUIN [Concomitant]
     Dosage: 500 mg, qd
  6. K-DUR [Concomitant]
     Dosage: 20 mEq, qd
     Route: 048
  7. DIFLUCAN [Concomitant]
     Dosage: 200 mg, qd

REACTIONS (3)
  - Diarrhoea [Recovered/Resolved]
  - Retching [Recovered/Resolved]
  - Nausea [Recovered/Resolved]
